FAERS Safety Report 16314370 (Version 2)
Quarter: 2019Q2

REPORT INFORMATION
  Report Type: Spontaneous
  Country: US (occurrence: US)
  Receive Date: 20190515
  Receipt Date: 20190516
  Transmission Date: 20190711
  Serious: Yes (Hospitalization, Other)
  Sender: FDA-Public Use
  Company Number: US-PFIZER INC-2019203315

PATIENT
  Age: 69 Year

DRUGS (3)
  1. ZITHROMAX [Suspect]
     Active Substance: AZITHROMYCIN DIHYDRATE
     Indication: GASTROINTESTINAL INFECTION
  2. ZITHROMAX [Suspect]
     Active Substance: AZITHROMYCIN DIHYDRATE
     Indication: ABDOMINAL INFECTION
  3. ZITHROMAX [Suspect]
     Active Substance: AZITHROMYCIN DIHYDRATE
     Indication: PANCREAS INFECTION
     Dosage: UNK

REACTIONS (4)
  - Pancreatic carcinoma [Unknown]
  - Abdominal pain upper [Unknown]
  - Infection [Unknown]
  - Malaise [Unknown]
